FAERS Safety Report 8047385-5 (Version None)
Quarter: 2012Q1

REPORT INFORMATION
  Report Type: 
  Country: None (occurrence: None)
  Receive Date: 20120116
  Receipt Date: 20111208
  Transmission Date: 20120608
  Serious: Yes (Hospitalization)
  Sender: FDA-Public Use
  Company Number: US-ENDO PHARMACEUTICALS INC.-PERC20110120

PATIENT
  Sex: Female

DRUGS (1)
  1. ENDOCET 10MG/650MG [Suspect]
     Indication: PRODUCT USED FOR UNKNOWN INDICATION
     Dosage: 20/1300 MG
     Route: 048

REACTIONS (4)
  - ADVERSE EVENT [None]
  - HEPATOTOXICITY [None]
  - GASTROINTESTINAL HAEMORRHAGE [None]
  - PRODUCT COMMINGLING [None]
